FAERS Safety Report 9408525 (Version 1)
Quarter: 2013Q3

REPORT INFORMATION
  Report Type: Spontaneous
  Country: US (occurrence: US)
  Receive Date: 20130718
  Receipt Date: 20130718
  Transmission Date: 20140515
  Serious: Yes (Other)
  Sender: FDA-Public Use
  Company Number: US-ASTELLAS-2013US005353

PATIENT
  Sex: Male
  Weight: 91 kg

DRUGS (3)
  1. VESICARE [Suspect]
     Indication: HYPERTONIC BLADDER
     Dosage: 5 MG, UID/QD
     Route: 048
     Dates: start: 20130417, end: 201305
  2. MYRBETRIQ [Suspect]
     Indication: HYPERTONIC BLADDER
     Dosage: 25 MG, UID/QD
     Route: 048
     Dates: start: 201305, end: 201305
  3. GELNIQUE [Suspect]
     Indication: HYPERTONIC BLADDER
     Dosage: 3 %, UNKNOWN/D
     Route: 065
     Dates: start: 201305, end: 201305

REACTIONS (5)
  - Hypertension [Unknown]
  - Hyperhidrosis [Unknown]
  - Vision blurred [Unknown]
  - Dry mouth [Unknown]
  - Constipation [Recovered/Resolved]
